FAERS Safety Report 4322526-1 (Version None)
Quarter: 2004Q1

REPORT INFORMATION
  Report Type: 
  Country: None (occurrence: None)
  Receive Date: 20040324
  Receipt Date: 20040319
  Transmission Date: 20041129
  Serious: Yes (Hospitalization, Other)
  Sender: FDA-Public Use
  Company Number: 200412106US

PATIENT
  Sex: Female
  Weight: 125 kg

DRUGS (18)
  1. LANTUS [Suspect]
     Indication: DIABETES MELLITUS NON-INSULIN-DEPENDENT
     Dosage: DOSE UNIT: UNITS
     Route: 051
  2. COLACE [Concomitant]
     Dosage: DOSE: UNKNOWN
  3. DARVOCET-N 100 [Concomitant]
     Dosage: DOSE: UNKNOWN
  4. LASIX [Concomitant]
     Dosage: DOSE: UNKNOWN
  5. POTASSIUM [Concomitant]
     Dosage: DOSE: UNKNOWN
  6. VITAMIN C [Concomitant]
     Dosage: DOSE: UNKNOWN
  7. DIGOXIN [Concomitant]
     Dosage: DOSE: UNKNOWN
  8. GUAIFENESIN [Concomitant]
     Dosage: DOSE: UNKNOWN
  9. DILANTIN [Concomitant]
     Dosage: DOSE: UNKNOWN
  10. VENTOLIN [Concomitant]
     Dosage: DOSE: UNKNOWN
  11. ATROVENT [Concomitant]
     Dosage: DOSE: UNKNOWN
  12. PREDNISONE [Concomitant]
     Dosage: DOSE: UNKNOWN
  13. ERYTHROMYCIN [Concomitant]
     Dosage: DOSE: UNKNOWN
  14. SIMETHICONE [Concomitant]
     Dosage: DOSE: UNKNOWN
  15. DOXYCYCLINE [Concomitant]
     Dosage: DOSE: UNKNOWN
  16. MIACALCIN [Concomitant]
     Dosage: DOSE: UNKNOWN
  17. RABEPRAZOLE SODIUM [Concomitant]
     Dosage: DOSE: UNKNOWN
  18. SINEQUAN [Concomitant]
     Dosage: DOSE: UNKNOWN

REACTIONS (4)
  - DIVERTICULITIS [None]
  - GAMMA-GLUTAMYLTRANSFERASE INCREASED [None]
  - SEPSIS [None]
  - WEIGHT DECREASED [None]
